FAERS Safety Report 20727673 (Version 1)
Quarter: 2022Q2

REPORT INFORMATION
  Report Type: Spontaneous
  Country: US (occurrence: None)
  Receive Date: 20220419
  Receipt Date: 20220419
  Transmission Date: 20220721
  Serious: No
  Sender: FDA-Public Use
  Company Number: US-ROCHE-2876655

PATIENT
  Sex: Female
  Weight: 81.720 kg

DRUGS (8)
  1. AVASTIN [Suspect]
     Active Substance: BEVACIZUMAB
     Indication: Uterine cancer
     Dosage: ONLY HAD 1 DOSE
     Route: 042
     Dates: start: 20210610
  2. AVASTIN [Suspect]
     Active Substance: BEVACIZUMAB
     Indication: Uterine cancer
  3. DOXIL [Concomitant]
     Active Substance: DOXORUBICIN HYDROCHLORIDE
     Indication: Uterine cancer
     Dosage: STARTED AROUND 15-JUN-2021 HAD 2ND ROUND OF THIS
     Route: 042
     Dates: start: 202006
  4. TELMISARTAN [Concomitant]
     Active Substance: TELMISARTAN
     Indication: Hypertension
     Dosage: 80 MG UNKNOWN MEDICATION/ 12.5 MG UNKNOWN DIURETIC
     Route: 048
  5. TELMISARTAN [Concomitant]
     Active Substance: TELMISARTAN
     Dosage: 80 MG UNKNOWN MEDICATION/ 25 MG UNKNOWN DIURETIC
     Route: 048
     Dates: start: 2021
  6. BISOPROLOL [Concomitant]
     Active Substance: BISOPROLOL
     Indication: Hypertension
     Route: 048
  7. CLONIDINE [Concomitant]
     Active Substance: CLONIDINE
     Indication: Hypertension
     Dosage: AS NEEDED UNKNOWN FREQUENCY, STOPPED WORKING ;ONGOING: YES
     Route: 048
     Dates: start: 202106
  8. HYDRALAZINE [Concomitant]
     Active Substance: HYDRALAZINE HYDROCHLORIDE
     Indication: Hypertension
     Dosage: STARTED END OF LAST WEEK OR BEGINNING OF THIS WEEK ;ONGOING: YES
     Route: 048
     Dates: start: 202107

REACTIONS (2)
  - Hypertension [Not Recovered/Not Resolved]
  - Off label use [Unknown]
